FAERS Safety Report 6706560-X (Version None)
Quarter: 2010Q2

REPORT INFORMATION
  Report Type: 
  Country: None (occurrence: None)
  Receive Date: 20100503
  Receipt Date: 20100423
  Transmission Date: 20101027
  Serious: Yes (Other)
  Sender: FDA-Public Use
  Company Number: GB-ASTRAZENECA-2010SE18262

PATIENT
  Sex: Male

DRUGS (2)
  1. NEXIUM [Suspect]
     Route: 048
  2. LEVOTHYROXINE SODIUM [Interacting]
     Indication: THYROID DISORDER

REACTIONS (2)
  - DRUG INEFFECTIVE [None]
  - INHIBITORY DRUG INTERACTION [None]
